FAERS Safety Report 21398442 (Version 1)
Quarter: 2022Q3

REPORT INFORMATION
  Report Type: Spontaneous
  Country: US (occurrence: US)
  Receive Date: 20220930
  Receipt Date: 20220930
  Transmission Date: 20221027
  Serious: No
  Sender: FDA-Public Use
  Company Number: None

PATIENT
  Sex: Male

DRUGS (1)
  1. VASCEPA [Suspect]
     Active Substance: ICOSAPENT ETHYL
     Indication: Product used for unknown indication

REACTIONS (5)
  - Product taste abnormal [Unknown]
  - Product container issue [Unknown]
  - Product physical issue [Unknown]
  - Product adhesion issue [Unknown]
  - Product odour abnormal [Unknown]
